FAERS Safety Report 16884772 (Version 2)
Quarter: 2019Q4

REPORT INFORMATION
  Report Type: Report from Study
  Country: JP (occurrence: JP)
  Receive Date: 20191004
  Receipt Date: 20191009
  Transmission Date: 20200122
  Serious: Yes (Hospitalization)
  Sender: FDA-Public Use
  Company Number: JP-ROCHE-2306314

PATIENT
  Age: 70 Year
  Sex: Male
  Weight: 66 kg

DRUGS (25)
  1. REMICADE [Suspect]
     Active Substance: INFLIXIMAB
     Indication: INFLAMMATORY BOWEL DISEASE
     Route: 041
     Dates: start: 20181113, end: 20181113
  2. FLUCONAZOLE. [Suspect]
     Active Substance: FLUCONAZOLE
     Indication: CANDIDA SEPSIS
     Route: 048
     Dates: start: 20190125
  3. PRODIF [Suspect]
     Active Substance: FOSFLUCONAZOLE
     Indication: CANDIDA SEPSIS
     Route: 041
     Dates: start: 20190118, end: 20190128
  4. PREDONINE [Suspect]
     Active Substance: PREDNISOLONE
     Route: 048
     Dates: start: 20181108
  5. LOPEMIN [LOPERAMIDE HYDROCHLORIDE] [Suspect]
     Active Substance: LOPERAMIDE HYDROCHLORIDE
     Indication: INFLAMMATORY BOWEL DISEASE
     Route: 048
     Dates: start: 20181022
  6. FUNGUARD [Suspect]
     Active Substance: MICAFUNGIN SODIUM
     Indication: CANDIDA SEPSIS
     Route: 041
     Dates: start: 20190116, end: 20190118
  7. ATEZOLIZUMAB. [Suspect]
     Active Substance: ATEZOLIZUMAB
     Indication: LUNG ADENOCARCINOMA
     Route: 041
     Dates: start: 20180831, end: 20181012
  8. CEFAZOLIN NA [Suspect]
     Active Substance: CEFAZOLIN SODIUM
     Indication: CANDIDA SEPSIS
     Route: 041
     Dates: start: 20190123, end: 20190129
  9. PREDONINE [Suspect]
     Active Substance: PREDNISOLONE
     Route: 048
     Dates: start: 20190109
  10. PREDONINE [Suspect]
     Active Substance: PREDNISOLONE
     Route: 048
     Dates: start: 20190125
  11. PREDONINE [Suspect]
     Active Substance: PREDNISOLONE
     Route: 041
     Dates: start: 20190118
  12. FLAGYL [Suspect]
     Active Substance: METRONIDAZOLE\METRONIDAZOLE HYDROCHLORIDE
     Indication: CANDIDA SEPSIS
     Route: 048
     Dates: start: 20181122, end: 20181204
  13. PREDONINE [Suspect]
     Active Substance: PREDNISOLONE
     Indication: INFLAMMATORY BOWEL DISEASE
     Route: 041
     Dates: start: 20181105
  14. PREDONINE [Suspect]
     Active Substance: PREDNISOLONE
     Route: 041
     Dates: start: 20181122
  15. LEVOFLOXACIN HEMIHYDRATE [Suspect]
     Active Substance: LEVOFLOXACIN
     Indication: CANDIDA SEPSIS
     Route: 041
     Dates: start: 20190113, end: 20190121
  16. PREDONINE [Suspect]
     Active Substance: PREDNISOLONE
     Route: 048
     Dates: start: 20181129
  17. PREDONINE [Suspect]
     Active Substance: PREDNISOLONE
     Route: 048
     Dates: start: 20181212
  18. PREDONINE [Suspect]
     Active Substance: PREDNISOLONE
     Route: 048
     Dates: start: 20190201
  19. SULFAMETHOXAZOLE/TRIMETHOPRIM [Suspect]
     Active Substance: SULFAMETHOXAZOLE\TRIMETHOPRIM
     Indication: CANDIDA SEPSIS
     Route: 048
     Dates: start: 20190114
  20. PREDONINE [Suspect]
     Active Substance: PREDNISOLONE
     Route: 048
     Dates: start: 20181129
  21. PREDONINE [Suspect]
     Active Substance: PREDNISOLONE
     Route: 048
     Dates: start: 20190222
  22. SULFAMETHOXAZOLE/TRIMETHOPRIM [Suspect]
     Active Substance: SULFAMETHOXAZOLE\TRIMETHOPRIM
     Indication: INFLAMMATORY BOWEL DISEASE
     Route: 048
     Dates: start: 20181108
  23. MIYA-BM [Suspect]
     Active Substance: CLOSTRIDIUM BUTYRICUM SPORES STRAIN M-55
     Indication: INFLAMMATORY BOWEL DISEASE
     Route: 048
     Dates: start: 20181022
  24. PREDONINE [Suspect]
     Active Substance: PREDNISOLONE
     Indication: INFLAMMATORY BOWEL DISEASE
     Route: 041
     Dates: start: 20181116
  25. PREDONINE [Suspect]
     Active Substance: PREDNISOLONE
     Route: 048
     Dates: start: 20181204

REACTIONS (2)
  - Inflammatory bowel disease [Recovering/Resolving]
  - Candida sepsis [Recovering/Resolving]

NARRATIVE: CASE EVENT DATE: 20181025
